FAERS Safety Report 6434362-0 (Version None)
Quarter: 2009Q4

REPORT INFORMATION
  Report Type: 
  Country: None (occurrence: None)
  Receive Date: 20091110
  Receipt Date: 20090603
  Transmission Date: 20100525
  Serious: No
  Sender: FDA-Public Use
  Company Number: US-ASTRAZENECA-2009SE10026

PATIENT
  Sex: Male

DRUGS (1)
  1. PRILOSEC OTC [Suspect]
     Indication: DYSPEPSIA
     Route: 048
     Dates: start: 20080702

REACTIONS (2)
  - FOOD POISONING [None]
  - VOMITING [None]
